FAERS Safety Report 16412097 (Version 1)
Quarter: 2019Q2

REPORT INFORMATION
  Report Type: Spontaneous
  Country: JP (occurrence: JP)
  Receive Date: 20190610
  Receipt Date: 20190610
  Transmission Date: 20190711
  Serious: Yes (Hospitalization, Other)
  Sender: FDA-Public Use
  Company Number: JP-PFIZER INC-2019242179

PATIENT
  Age: 23 Year
  Sex: Female

DRUGS (4)
  1. LORAZEPAM. [Suspect]
     Active Substance: LORAZEPAM
     Indication: PERSONALITY DISORDER
     Dosage: UNK
     Dates: start: 201803
  2. CARBAMAZEPINE. [Concomitant]
     Active Substance: CARBAMAZEPINE
     Indication: EPILEPSY
     Dosage: UNK
     Dates: start: 2006
  3. SODIUM VALPROATE [Concomitant]
     Active Substance: VALPROATE SODIUM
     Indication: EPILEPSY
     Dosage: UNK
     Dates: start: 2006
  4. QUETIAPINE FUMARATE. [Suspect]
     Active Substance: QUETIAPINE FUMARATE
     Indication: PERSONALITY DISORDER
     Dosage: UNK
     Dates: start: 201803

REACTIONS (11)
  - Oropharyngeal pain [Recovered/Resolved]
  - Drug reaction with eosinophilia and systemic symptoms [Recovering/Resolving]
  - Pharyngeal erythema [Recovered/Resolved]
  - Erythema [Unknown]
  - Pyrexia [Recovered/Resolved]
  - Cytomegalovirus test positive [Unknown]
  - Epstein-Barr virus infection [Unknown]
  - Hepatic function abnormal [Recovered/Resolved]
  - Lymphocyte morphology abnormal [Recovered/Resolved]
  - Rash [Recovered/Resolved]
  - Hepatosplenomegaly [Unknown]

NARRATIVE: CASE EVENT DATE: 20180323
